FAERS Safety Report 14047754 (Version 1)
Quarter: 2017Q4

REPORT INFORMATION
  Report Type: Spontaneous
  Country: US (occurrence: US)
  Receive Date: 20171005
  Receipt Date: 20171005
  Transmission Date: 20180321
  Serious: Yes (Hospitalization, Other)
  Sender: FDA-Public Use
  Company Number: US-PFIZER INC-2017422247

PATIENT
  Sex: Male

DRUGS (1)
  1. ZOLOFT [Suspect]
     Active Substance: SERTRALINE HYDROCHLORIDE
     Dosage: UNK

REACTIONS (7)
  - Circumstance or information capable of leading to medication error [Unknown]
  - Carbon monoxide poisoning [Unknown]
  - Apparent death [Unknown]
  - Neurosis [Not Recovered/Not Resolved]
  - Urinary incontinence [Unknown]
  - Vomiting [Unknown]
  - Metabolic encephalopathy [Unknown]
